FAERS Safety Report 6181836-6 (Version None)
Quarter: 2009Q2

REPORT INFORMATION
  Report Type: 
  Country: None (occurrence: None)
  Receive Date: 20090506
  Receipt Date: 20090428
  Transmission Date: 20091009
  Serious: Yes (Hospitalization)
  Sender: FDA-Public Use
  Company Number: US-GENENTECH-280371

PATIENT
  Sex: Male
  Weight: 78.458 kg

DRUGS (2)
  1. AVASTIN [Suspect]
     Indication: COLORECTAL CANCER METASTATIC
     Dosage: 400 MG, Q3W
     Route: 042
     Dates: start: 20090324
  2. ASPIRIN [Suspect]
     Indication: DRUG USE FOR UNKNOWN INDICATION

REACTIONS (2)
  - CONTUSION [None]
  - INTERNATIONAL NORMALISED RATIO INCREASED [None]
